FAERS Safety Report 6239538-3 (Version None)
Quarter: 2009Q2

REPORT INFORMATION
  Report Type: 
  Country: None (occurrence: None)
  Receive Date: 20090618
  Receipt Date: 20090618
  Transmission Date: 20091009
  Serious: Yes (Other)
  Sender: FDA-Public Use
  Company Number: None

PATIENT
  Age: 70 Year
  Sex: Female

DRUGS (1)
  1. SPIRONOLACTONE [Suspect]
     Indication: OEDEMA
     Dosage: TAKE 1 TABLET DAILY 2 TO 3 WEEKS

REACTIONS (3)
  - BURNING SENSATION [None]
  - ODYNOPHAGIA [None]
  - PRODUCT QUALITY ISSUE [None]
